FAERS Safety Report 21612482 (Version 1)
Quarter: 2022Q4

REPORT INFORMATION
  Report Type: Report from Study
  Country: IT (occurrence: IT)
  Receive Date: 20221118
  Receipt Date: 20221118
  Transmission Date: 20230112
  Serious: Yes (Other)
  Sender: FDA-Public Use
  Company Number: None

PATIENT
  Age: 2 Year
  Sex: Female
  Weight: 11 kg

DRUGS (1)
  1. VINCRISTINE [Suspect]
     Active Substance: VINCRISTINE
     Indication: Ganglioglioma
     Dosage: 0.93 MG/DAY ON 09/13/22 AND 29/09/22, DURATION: 16 DAYS; VINCRISTINE TEVA ITALIA
     Route: 065
     Dates: start: 20220913, end: 20220929

REACTIONS (2)
  - Pancytopenia [Recovering/Resolving]
  - Anaemia [Not Recovered/Not Resolved]

NARRATIVE: CASE EVENT DATE: 20220919
